FAERS Safety Report 7269082-6 (Version None)
Quarter: 2011Q1

REPORT INFORMATION
  Report Type: 
  Country: None (occurrence: None)
  Receive Date: 20110202
  Receipt Date: 20110119
  Transmission Date: 20110831
  Serious: No
  Sender: FDA-Public Use
  Company Number: US-BIOGENIDEC-2011BI000780

PATIENT
  Age: 34 Year
  Sex: Female

DRUGS (1)
  1. TYSABRI [Suspect]
     Indication: MULTIPLE SCLEROSIS
     Route: 042
     Dates: start: 20100707

REACTIONS (5)
  - VAGINAL INFECTION [None]
  - MENOMETRORRHAGIA [None]
  - CONJUNCTIVITIS [None]
  - SINUSITIS [None]
  - VAGINAL HAEMORRHAGE [None]
